FAERS Safety Report 14270637 (Version 1)
Quarter: 2017Q4

REPORT INFORMATION
  Report Type: Spontaneous
  Country: DE (occurrence: DE)
  Receive Date: 20171211
  Receipt Date: 20171211
  Transmission Date: 20180321
  Serious: Yes (Other)
  Sender: FDA-Public Use
  Company Number: DE-OTSUKA-DJ20112702

PATIENT
  Age: 22 Year
  Sex: Female

DRUGS (7)
  1. TRUXAL [Suspect]
     Active Substance: CHLORPROTHIXENE
     Indication: RESTLESSNESS
     Dosage: 50 MG, QD
     Route: 065
     Dates: start: 20101007, end: 20101231
  2. LEVONORGESTREL + ETINILESTRADIOL [Concomitant]
     Indication: CONTRACEPTION
  3. TRUXAL [Suspect]
     Active Substance: CHLORPROTHIXENE
     Indication: ANXIETY
  4. ABILIFY [Suspect]
     Active Substance: ARIPIPRAZOLE
     Indication: SCHIZOPHRENIA
     Dosage: 10 MG, QD
     Route: 065
     Dates: start: 20101007
  5. TRUXAL [Suspect]
     Active Substance: CHLORPROTHIXENE
     Indication: SLEEP DISORDER
  6. AKINETON [Suspect]
     Active Substance: BIPERIDEN HYDROCHLORIDE
     Indication: AKATHISIA
     Dosage: 2 MG, BID
     Route: 065
     Dates: start: 20101007, end: 20101231
  7. LEVONORGESTREL + ETINILESTRADIOL [Concomitant]
     Indication: PRODUCT USED FOR UNKNOWN INDICATION
     Dosage: UNK
     Route: 065

REACTIONS (2)
  - Abortion spontaneous [Unknown]
  - Pregnancy on contraceptive [Unknown]

NARRATIVE: CASE EVENT DATE: 20110502
